FAERS Safety Report 7414434 (Version 5)
Quarter: 2014Q1

REPORT INFORMATION
  Report Type: Spontaneous
  Country: US (occurrence: US)
  Receive Date: 20100609
  Receipt Date: 20140211
  Transmission Date: 20141002
  Serious: Yes (Hospitalization, Other)
  Sender: FDA-Public Use
  Company Number: US-ROCHE-678482

PATIENT
  Age: 27 Year
  Sex: Male
  Weight: 74.8 kg

DRUGS (2)
  1. ACCUTANE [Suspect]
     Indication: ACNE
     Route: 048
     Dates: start: 20010928, end: 20020315
  2. ALLEGRA [Concomitant]
     Indication: HYPERSENSITIVITY

REACTIONS (15)
  - Crohn^s disease [Unknown]
  - Nephrolithiasis [Recovered/Resolved]
  - Anal fistula [Recovered/Resolved]
  - Gastrointestinal injury [Unknown]
  - Anal fissure [Unknown]
  - Ileus [Unknown]
  - Inflammatory bowel disease [Unknown]
  - Abdominal abscess [Unknown]
  - Anal abscess [Recovering/Resolving]
  - Back pain [Unknown]
  - Haemangioma [Unknown]
  - Aspartate aminotransferase increased [Unknown]
  - Alanine aminotransferase increased [Unknown]
  - High density lipoprotein decreased [Unknown]
  - Low density lipoprotein increased [Unknown]
